FAERS Safety Report 16591626 (Version 1)
Quarter: 2019Q3

REPORT INFORMATION
  Report Type: Report from Study
  Country: US (occurrence: US)
  Receive Date: 20190718
  Receipt Date: 20190718
  Transmission Date: 20191004
  Serious: Yes (Death)
  Sender: FDA-Public Use
  Company Number: US-ASTRAZENECA-2019SF03072

PATIENT
  Sex: Female

DRUGS (37)
  1. SERTRALINE HYDROCHLORIDE. [Concomitant]
     Active Substance: SERTRALINE HYDROCHLORIDE
  2. MONTELUKAST SODIUM. [Concomitant]
     Active Substance: MONTELUKAST SODIUM
  3. POTASSIUM CHLORIDE. [Concomitant]
     Active Substance: POTASSIUM CHLORIDE
  4. PREDNISONE. [Concomitant]
     Active Substance: PREDNISONE
  5. FLUCONAZOLE. [Concomitant]
     Active Substance: FLUCONAZOLE
  6. AMOXICILLIN-CLAVULANAT - [Concomitant]
  7. FASENRA [Suspect]
     Active Substance: BENRALIZUMAB
     Indication: ASTHMA
     Dosage: 30MG/ML EVERY EIGHT WEEKS
     Route: 058
  8. ALVESCO [Suspect]
     Active Substance: CICLESONIDE
     Route: 055
  9. LEVALBUTEROL. [Concomitant]
     Active Substance: LEVALBUTEROL
  10. SUCRALFATE. [Concomitant]
     Active Substance: SUCRALFATE
  11. ALPRAZOLAM. [Concomitant]
     Active Substance: ALPRAZOLAM
  12. ISAVUCONAZOLE [Concomitant]
     Active Substance: ISAVUCONAZOLE
  13. HYDROCODONE-ACETAMINOP [Concomitant]
  14. GLIMEPIRIDE. [Concomitant]
     Active Substance: GLIMEPIRIDE
  15. METOPROLOL SUCCINATE. [Suspect]
     Active Substance: METOPROLOL SUCCINATE
     Route: 048
  16. ATORVASTATIN [Concomitant]
     Active Substance: ATORVASTATIN
  17. CLOPIDOGREL [Concomitant]
     Active Substance: CLOPIDOGREL BISULFATE
  18. PROCTOSOL-HC [Concomitant]
     Active Substance: HYDROCORTISONE
  19. HYDROCORTISONE ACETATE. [Concomitant]
     Active Substance: HYDROCORTISONE ACETATE
  20. LACTULOSE. [Concomitant]
     Active Substance: LACTULOSE
  21. LISINOPRIL. [Suspect]
     Active Substance: LISINOPRIL
     Route: 048
  22. LANTUS [Concomitant]
     Active Substance: INSULIN GLARGINE
  23. RAMIPRIL. [Concomitant]
     Active Substance: RAMIPRIL
  24. BACLOFEN. [Concomitant]
     Active Substance: BACLOFEN
  25. AZELASTINE. [Concomitant]
     Active Substance: AZELASTINE HYDROCHLORIDE
  26. BACLOFEN. [Concomitant]
     Active Substance: BACLOFEN
  27. LINZESS [Concomitant]
     Active Substance: LINACLOTIDE
  28. ONDANSETRON [Concomitant]
     Active Substance: ONDANSETRON
  29. DEXILANT [Concomitant]
     Active Substance: DEXLANSOPRAZOLE
  30. ISAVUCONAZOLE [Concomitant]
     Active Substance: ISAVUCONAZOLE
  31. NARCAN [Concomitant]
     Active Substance: NALOXONE HYDROCHLORIDE
  32. TEMAZEPAM. [Concomitant]
     Active Substance: TEMAZEPAM
  33. SYMBICORT [Suspect]
     Active Substance: BUDESONIDE\FORMOTEROL FUMARATE DIHYDRATE
     Dosage: UNKNOWN DOSE UNKNOWN
     Route: 055
  34. NYSTATIN. [Concomitant]
     Active Substance: NYSTATIN
  35. ACYCLOVIR. [Concomitant]
     Active Substance: ACYCLOVIR
  36. FUROSEMIDE. [Concomitant]
     Active Substance: FUROSEMIDE
  37. HUMALOG [Concomitant]
     Active Substance: INSULIN LISPRO

REACTIONS (1)
  - Death [Fatal]
